FAERS Safety Report 8368115-3 (Version None)
Quarter: 2012Q2

REPORT INFORMATION
  Report Type: 
  Country: None (occurrence: None)
  Receive Date: 20120517
  Receipt Date: 20120510
  Transmission Date: 20120825
  Serious: Yes (Hospitalization)
  Sender: FDA-Public Use
  Company Number: UY-ABBOTT-12P-168-0934788-00

PATIENT
  Age: 47 Year
  Sex: Female

DRUGS (3)
  1. HUMIRA [Suspect]
     Indication: CROHN'S DISEASE
     Dates: start: 20120301, end: 20120510
  2. AZATHIOPRINE [Concomitant]
     Indication: CROHN'S DISEASE
     Dates: end: 20120510
  3. AZATHIOPRINE [Concomitant]
     Indication: ANAL FISTULA

REACTIONS (3)
  - PYREXIA [None]
  - ABDOMINAL DISTENSION [None]
  - POLYSEROSITIS [None]
